FAERS Safety Report 17998646 (Version 6)
Quarter: 2025Q1

REPORT INFORMATION
  Report Type: Report from Study
  Country: US (occurrence: US)
  Receive Date: 20200709
  Receipt Date: 20250318
  Transmission Date: 20250408
  Serious: Yes (Other)
  Sender: TAKEDA
  Company Number: US-SHIRE-US202021959

PATIENT
  Sex: Female
  Weight: 77 kg

DRUGS (43)
  1. HUMAN IMMUNOGLOBULIN G [Suspect]
     Active Substance: HUMAN IMMUNOGLOBULIN G
     Indication: Immunodeficiency common variable
     Dosage: 16 GRAM, Q2WEEKS
     Dates: start: 20180620
  2. HUMAN IMMUNOGLOBULIN G [Suspect]
     Active Substance: HUMAN IMMUNOGLOBULIN G
     Indication: Immunodeficiency
     Dosage: 16 GRAM, Q2WEEKS
     Dates: start: 20190329
  3. HUMAN IMMUNOGLOBULIN G [Suspect]
     Active Substance: HUMAN IMMUNOGLOBULIN G
     Dosage: 16 GRAM, Q2WEEKS
     Dates: start: 20210325
  4. HUMAN IMMUNOGLOBULIN G [Suspect]
     Active Substance: HUMAN IMMUNOGLOBULIN G
     Dosage: 18 GRAM, Q2WEEKS
  5. ENBREL [Suspect]
     Active Substance: ETANERCEPT
     Indication: Product used for unknown indication
  6. ACETAMINOPHEN [Concomitant]
     Active Substance: ACETAMINOPHEN
  7. DIPHENHYDRAMINE [Concomitant]
     Active Substance: DIPHENHYDRAMINE
  8. EPINEPHRINE [Concomitant]
     Active Substance: EPINEPHRINE
  9. LIDOCAINE [Concomitant]
     Active Substance: LIDOCAINE
  10. CALCIUM [Concomitant]
     Active Substance: CALCIUM
  11. FLONASE [Concomitant]
     Active Substance: FLUTICASONE PROPIONATE
  12. NABUMETONE [Concomitant]
     Active Substance: NABUMETONE
  13. KLONOPIN [Concomitant]
     Active Substance: CLONAZEPAM
  14. SINGULAIR [Concomitant]
     Active Substance: MONTELUKAST SODIUM
  15. BREO ELLIPTA [Concomitant]
     Active Substance: FLUTICASONE FUROATE\VILANTEROL TRIFENATATE
  16. VITAMIN B12 [Concomitant]
     Active Substance: CYANOCOBALAMIN
  17. NEXIUM [Concomitant]
     Active Substance: ESOMEPRAZOLE MAGNESIUM
  18. SPIRIVA [Concomitant]
     Active Substance: TIOTROPIUM BROMIDE MONOHYDRATE
  19. ZINC [Concomitant]
     Active Substance: ZINC
  20. VITAMIN C [Concomitant]
     Active Substance: ASCORBIC ACID
  21. ZANAFLEX [Concomitant]
     Active Substance: TIZANIDINE HYDROCHLORIDE
  22. XYZAL [Concomitant]
     Active Substance: LEVOCETIRIZINE DIHYDROCHLORIDE
  23. MELATONIN [Concomitant]
     Active Substance: MELATONIN
  24. MUCINEX [Concomitant]
     Active Substance: GUAIFENESIN
  25. EFFEXOR [Concomitant]
     Active Substance: VENLAFAXINE HYDROCHLORIDE
  26. LIDOCAINE\PRILOCAINE [Concomitant]
     Active Substance: LIDOCAINE\PRILOCAINE
  27. Calcium plus d3 [Concomitant]
  28. EXCEDRIN MIGRAINE [Concomitant]
     Active Substance: ACETAMINOPHEN\ASPIRIN\CAFFEINE
  29. RIZATRIPTAN [Concomitant]
     Active Substance: RIZATRIPTAN
  30. PHENERGAN [Concomitant]
     Active Substance: PROMETHAZINE HYDROCHLORIDE
  31. MIRALAX [Concomitant]
     Active Substance: POLYETHYLENE GLYCOL 3350
  32. VITAMIN B COMPLEX [Concomitant]
     Active Substance: CYANOCOBALAMIN\DEXPANTHENOL\NIACINAMIDE\PYRIDOXINE HYDROCHLORIDE\RIBOFLAVIN 5^-PHOSPHATE SODIUM\THIA
  33. TROKENDI XR [Concomitant]
     Active Substance: TOPIRAMATE
  34. SUMATRIPTAN [Concomitant]
     Active Substance: SUMATRIPTAN
  35. TRELEGY ELLIPTA [Concomitant]
     Active Substance: FLUTICASONE FUROATE\UMECLIDINIUM BROMIDE\VILANTEROL TRIFENATATE
  36. ALBUTEROL SULFATE [Concomitant]
     Active Substance: ALBUTEROL SULFATE
  37. ALLEGRA ALLERGY [Concomitant]
     Active Substance: FEXOFENADINE HYDROCHLORIDE
  38. DIPHENHYDRAMINE HYDROCHLORIDE [Concomitant]
     Active Substance: DIPHENHYDRAMINE HYDROCHLORIDE
  39. AIMOVIG [Concomitant]
     Active Substance: ERENUMAB-AOOE
  40. FLUTICASONE PROPIONATE [Concomitant]
     Active Substance: FLUTICASONE PROPIONATE
  41. PREDNISONE [Concomitant]
     Active Substance: PREDNISONE
  42. MINERALS\VITAMINS [Concomitant]
     Active Substance: MINERALS\VITAMINS
  43. TIZANIDINE HYDROCHLORIDE [Concomitant]
     Active Substance: TIZANIDINE HYDROCHLORIDE

REACTIONS (17)
  - Colitis [Unknown]
  - Multiple allergies [Unknown]
  - Weight fluctuation [Unknown]
  - Illness [Unknown]
  - Gastric infection [Unknown]
  - Bronchitis [Unknown]
  - COVID-19 [Unknown]
  - Insurance issue [Unknown]
  - Product dose omission issue [Unknown]
  - Herpes zoster [Unknown]
  - Infusion site discharge [Unknown]
  - Sinusitis [Unknown]
  - Asthma [Unknown]
  - Infusion site warmth [Recovering/Resolving]
  - Infusion site erythema [Recovered/Resolved]
  - Pain [Unknown]
  - Infusion site swelling [Recovering/Resolving]
